FAERS Safety Report 21849217 (Version 2)
Quarter: 2023Q1

REPORT INFORMATION
  Report Type: Spontaneous
  Country: US (occurrence: US)
  Receive Date: 20230111
  Receipt Date: 20230221
  Transmission Date: 20230418
  Serious: No
  Sender: FDA-Public Use
  Company Number: US-PFIZER INC-202300011228

PATIENT
  Age: 43 Year
  Sex: Female

DRUGS (2)
  1. PAXLOVID [Suspect]
     Active Substance: NIRMATRELVIR\RITONAVIR
     Indication: COVID-19 treatment
     Dosage: UNK
     Route: 048
     Dates: start: 20221227, end: 20221231
  2. VALSARTAN [Concomitant]
     Active Substance: VALSARTAN
     Indication: Hypertension
     Dosage: UNK
     Route: 048
     Dates: start: 2019

REACTIONS (3)
  - COVID-19 [Recovered/Resolved]
  - Disease recurrence [Recovered/Resolved]
  - Fatigue [Unknown]

NARRATIVE: CASE EVENT DATE: 20230103
